FAERS Safety Report 7247131-9 (Version None)
Quarter: 2011Q1

REPORT INFORMATION
  Report Type: 
  Country: None (occurrence: None)
  Receive Date: 20110127
  Receipt Date: 20100823
  Transmission Date: 20110831
  Serious: No
  Sender: FDA-Public Use
  Company Number: US-BAUSCH-2010BL004673

PATIENT
  Age: 58 Year
  Sex: Female
  Weight: 62 kg

DRUGS (2)
  1. ALAWAY [Suspect]
     Indication: EYE PRURITUS
     Route: 047
     Dates: start: 20100818
  2. COMBIGAN [Concomitant]
     Indication: GLAUCOMA
     Route: 047
     Dates: start: 20100818

REACTIONS (2)
  - DRY SKIN [None]
  - SKIN WRINKLING [None]
